FAERS Safety Report 5151072-0 (Version None)
Quarter: 2006Q4

REPORT INFORMATION
  Report Type: 
  Country: None (occurrence: None)
  Receive Date: 20061115
  Receipt Date: 20061020
  Transmission Date: 20070319
  Serious: Yes (Other)
  Sender: FDA-Public Use
  Company Number: PHRM2006FR02891

PATIENT
  Age: 34 Year
  Sex: Female
  Weight: 121 kg

DRUGS (1)
  1. LEPONEX [Suspect]
     Indication: SCHIZOPHRENIA
     Dosage: 400 MG, QD
     Route: 048
     Dates: start: 19980401, end: 20061009

REACTIONS (8)
  - ANAEMIA [None]
  - BREAST CANCER FEMALE [None]
  - LEUKOPENIA [None]
  - MONOCYTE COUNT DECREASED [None]
  - NEUTROPENIA [None]
  - PLATELET COUNT INCREASED [None]
  - RETICULOCYTE COUNT INCREASED [None]
  - SURGERY [None]
